FAERS Safety Report 8844461 (Version 1)
Quarter: 2012Q4

REPORT INFORMATION
  Report Type: Spontaneous
  Country: US (occurrence: None)
  Receive Date: 20121016
  Receipt Date: 20121016
  Transmission Date: 20130627
  Serious: Yes (Hospitalization)
  Sender: FDA-Public Use
  Company Number: None

PATIENT
  Age: 76 Year
  Sex: Male
  Weight: 75 kg

DRUGS (12)
  1. ASA [Suspect]
     Indication: DEEP VEIN THROMBOSIS
     Route: 048
  2. WARFARIN [Suspect]
     Route: 048
  3. BENADRYL [Concomitant]
  4. HUMALOG [Concomitant]
  5. D51/2NS [Concomitant]
  6. SIMETHICONE [Concomitant]
  7. VANCOMYCIN [Concomitant]
  8. CELEXA [Concomitant]
  9. XANAX [Concomitant]
  10. QUETIAPINE [Concomitant]
  11. OXYCONTIN [Concomitant]
  12. OYSTER SHELL CA + VIT D [Concomitant]

REACTIONS (3)
  - Rectal haemorrhage [None]
  - Hypokalaemia [None]
  - International normalised ratio decreased [None]
